FAERS Safety Report 22747772 (Version 2)
Quarter: 2024Q2

REPORT INFORMATION
  Report Type: Spontaneous
  Country: AU (occurrence: AU)
  Receive Date: 20230725
  Receipt Date: 20240402
  Transmission Date: 20240715
  Serious: Yes (Hospitalization, Other)
  Sender: FDA-Public Use
  Company Number: None

PATIENT
  Age: 67 Year
  Sex: Female

DRUGS (4)
  1. LEVETIRACETAM [Suspect]
     Active Substance: LEVETIRACETAM
     Indication: Seizure
     Dosage: 1 GRAM, 2X/DAY (BID)
     Route: 048
     Dates: start: 201712
  2. ALECTINIB HYDROCHLORIDE [Suspect]
     Active Substance: ALECTINIB HYDROCHLORIDE
     Indication: Non-small cell lung cancer
     Dosage: 600 MILLIGRAM, 2X/DAY (BID)
     Route: 048
     Dates: start: 20180223, end: 20180330
  3. ACYCLOVIR [Concomitant]
     Active Substance: ACYCLOVIR
     Indication: Product used for unknown indication
     Dosage: UNK
  4. CEFTAZIDIME [Concomitant]
     Active Substance: CEFTAZIDIME
     Indication: Product used for unknown indication
     Dosage: UNK

REACTIONS (7)
  - Deep vein thrombosis [Recovered/Resolved]
  - Pseudomonas infection [Recovered/Resolved]
  - Toxic epidermal necrolysis [Recovered/Resolved]
  - Erythema multiforme [Unknown]
  - Rash [Unknown]
  - Haematological infection [Unknown]
  - Herpes simplex [Unknown]

NARRATIVE: CASE EVENT DATE: 20180330
